FAERS Safety Report 20940228 (Version 1)
Quarter: 2022Q2

REPORT INFORMATION
  Report Type: Report from Study
  Country: BR (occurrence: BR)
  Receive Date: 20220609
  Receipt Date: 20220609
  Transmission Date: 20220721
  Serious: Yes (Other)
  Sender: FDA-Public Use
  Company Number: BR-JNJFOC-20220613480

PATIENT
  Age: 63 Year
  Sex: Female

DRUGS (6)
  1. SIMPONI [Suspect]
     Active Substance: GOLIMUMAB
     Indication: Rheumatoid arthritis
     Route: 058
     Dates: start: 20210830, end: 20220403
  2. SIMPONI [Suspect]
     Active Substance: GOLIMUMAB
  3. METHOTREXATE [Concomitant]
     Active Substance: METHOTREXATE
  4. PREDNISONE [Concomitant]
     Active Substance: PREDNISONE
  5. PROMETHAZINE HYDROCHLORIDE [Concomitant]
     Active Substance: PROMETHAZINE HYDROCHLORIDE
  6. PENICILLIN G [Concomitant]
     Active Substance: PENICILLIN G

REACTIONS (7)
  - Pneumonia bacterial [Unknown]
  - Urinary tract infection bacterial [Unknown]
  - Cystitis [Unknown]
  - Injection site swelling [Unknown]
  - Injection site erythema [Unknown]
  - Injection site pruritus [Unknown]
  - Injection site induration [Unknown]

NARRATIVE: CASE EVENT DATE: 20220101
